FAERS Safety Report 9328352 (Version 2)
Quarter: 2013Q4

REPORT INFORMATION
  Report Type: Spontaneous
  Country: US (occurrence: US)
  Receive Date: 20130604
  Receipt Date: 20131121
  Transmission Date: 20140711
  Serious: Yes (Hospitalization)
  Sender: FDA-Public Use
  Company Number: US-BAYER-2013-067943

PATIENT
  Sex: Female
  Weight: 65.76 kg

DRUGS (1)
  1. YASMIN [Suspect]
     Indication: UTERINE LEIOMYOMA
     Dosage: UNK
     Dates: start: 2002

REACTIONS (7)
  - Deep vein thrombosis [None]
  - Injury [None]
  - Pain [None]
  - General physical health deterioration [None]
  - Anxiety [None]
  - Emotional distress [None]
  - Pain [None]
